FAERS Safety Report 24460086 (Version 1)
Quarter: 2024Q4

REPORT INFORMATION
  Report Type: Spontaneous
  Country: CN (occurrence: CN)
  Receive Date: 20241018
  Receipt Date: 20241018
  Transmission Date: 20250115
  Serious: No
  Sender: ROCHE
  Company Number: CN-ROCHE-3544839

PATIENT
  Age: 24 Year
  Sex: Female

DRUGS (13)
  1. RITUXIMAB [Suspect]
     Active Substance: RITUXIMAB
     Indication: Central nervous system lymphoma
     Dosage: ON DAY 0
     Route: 065
  2. METHOTREXATE [Suspect]
     Active Substance: METHOTREXATE
     Indication: Central nervous system lymphoma
     Dosage: 3 G/M2 ON DAY 1
     Route: 065
  3. CYTARABINE [Suspect]
     Active Substance: CYTARABINE
     Indication: Central nervous system lymphoma
     Dosage: 2 G/M2 EVERY 12 HOURS ON DAY 2
     Route: 065
  4. TEMOZOLOMIDE [Suspect]
     Active Substance: TEMOZOLOMIDE
     Indication: Central nervous system lymphoma
     Dosage: DAYS 1-5
     Route: 065
  5. LENALIDOMIDE [Suspect]
     Active Substance: LENALIDOMIDE
     Indication: Central nervous system lymphoma
     Dosage: ON DAYS 1-21
     Route: 065
  6. DEXAMETHASONE [Suspect]
     Active Substance: DEXAMETHASONE
     Indication: Central nervous system lymphoma
     Dosage: ON DAYS 1-5
     Route: 065
  7. ETOPOSIDE [Suspect]
     Active Substance: ETOPOSIDE
     Indication: Central nervous system lymphoma
     Dosage: ON DAYS 1-5
     Route: 065
  8. IBRUTINIB [Suspect]
     Active Substance: IBRUTINIB
     Indication: Central nervous system lymphoma
     Dosage: ON DAYS 1-21
     Route: 065
  9. ZANUBRUTINIB [Concomitant]
     Active Substance: ZANUBRUTINIB
     Dosage: ON DAYS 1-21
  10. SINTILIMAB [Concomitant]
     Active Substance: SINTILIMAB
     Dosage: ON DAY 1 FOR 21 DAYS PER CYCLE
  11. THIOTEPA [Concomitant]
     Active Substance: THIOTEPA
     Dosage: ON DAY 3
  12. CARMUSTINE [Concomitant]
     Active Substance: CARMUSTINE
  13. TISLELIZUMAB [Concomitant]
     Active Substance: TISLELIZUMAB
     Dosage: ON DAY 1

REACTIONS (1)
  - Disease progression [Unknown]
